FAERS Safety Report 6496746-4 (Version None)
Quarter: 2009Q4

REPORT INFORMATION
  Report Type: 
  Country: None (occurrence: None)
  Receive Date: 20091211
  Receipt Date: 20091201
  Transmission Date: 20100525
  Serious: Yes (Death)
  Sender: FDA-Public Use
  Company Number: 084

PATIENT
  Age: 42 Year
  Sex: Female

DRUGS (1)
  1. FAZACLO ODT [Suspect]
     Indication: SCHIZOAFFECTIVE DISORDER
     Dosage: 200 MG. PO DAILY
     Route: 048
     Dates: start: 20050801, end: 20061001

REACTIONS (1)
  - DIABETES MELLITUS [None]
